FAERS Safety Report 5655219-9 (Version None)
Quarter: 2008Q1

REPORT INFORMATION
  Report Type: 
  Country: None (occurrence: None)
  Receive Date: 20080307
  Receipt Date: 20080305
  Transmission Date: 20080703
  Serious: Yes (Other)
  Sender: FDA-Public Use
  Company Number: A0713385A

PATIENT
  Age: 33 Year
  Sex: Male

DRUGS (2)
  1. NICORETTE [Suspect]
     Indication: SMOKING CESSATION THERAPY
     Dosage: 4MG SEE DOSAGE TEXT
     Route: 002
  2. NO CONCURRENT MEDICATION [Concomitant]

REACTIONS (6)
  - ANGER [None]
  - DEPENDENCE [None]
  - EXPIRED DRUG ADMINISTERED [None]
  - INTENTIONAL DRUG MISUSE [None]
  - JAW DISORDER [None]
  - PHARMACEUTICAL PRODUCT COMPLAINT [None]
